FAERS Safety Report 10551554 (Version 2)
Quarter: 2014Q4

REPORT INFORMATION
  Report Type: Spontaneous
  Country: US (occurrence: None)
  Receive Date: 20141027
  Receipt Date: 20141126
  Transmission Date: 20150529
  Serious: Yes (Other)
  Sender: FDA-Public Use
  Company Number: 2014-US-013551

PATIENT
  Age: 39 Year
  Sex: Male

DRUGS (9)
  1. LEXAPRO [Concomitant]
     Active Substance: ESCITALOPRAM OXALATE
  2. FENOFIBRATE (FENOFIBRATE) [Concomitant]
  3. SEROQUEL [Concomitant]
     Active Substance: QUETIAPINE FUMARATE
  4. XYREM [Suspect]
     Active Substance: SODIUM OXYBATE
     Indication: NARCOLEPSY
     Route: 048
     Dates: start: 201006, end: 201006
  5. DEPAKOTE ER (VALPROATE SEMISODIUM) [Concomitant]
  6. RITALIN ER (METHYLPHENIDATE HYDROCHLORIDE) [Concomitant]
  7. LAMICTAL [Concomitant]
     Active Substance: LAMOTRIGINE
  8. RITALIN (METHYLPHENIDATE HYDROCHLORIDE) [Concomitant]
     Active Substance: METHYLPHENIDATE HYDROCHLORIDE
  9. CRESTOR [Concomitant]
     Active Substance: ROSUVASTATIN CALCIUM

REACTIONS (2)
  - Fatigue [None]
  - Diabetes mellitus [None]

NARRATIVE: CASE EVENT DATE: 201408
